FAERS Safety Report 13647992 (Version 1)
Quarter: 2017Q2

REPORT INFORMATION
  Report Type: Spontaneous
  Country: US (occurrence: US)
  Receive Date: 20170613
  Receipt Date: 20170613
  Transmission Date: 20170830
  Serious: No
  Sender: FDA-Public Use
  Company Number: US-BAYER-2017-113331

PATIENT
  Sex: Female

DRUGS (1)
  1. GENERIC PMS STUDY FOR INTERFERON BETA - 1B (250?G) [Suspect]
     Active Substance: INTERFERON BETA-1B
     Indication: MULTIPLE SCLEROSIS
     Dosage: 0.3 MG, QOD
     Route: 058
     Dates: start: 20160213

REACTIONS (1)
  - Influenza like illness [None]
